FAERS Safety Report 4278241-6 (Version None)
Quarter: 2004Q1

REPORT INFORMATION
  Report Type: 
  Country: None (occurrence: None)
  Receive Date: 20040121
  Receipt Date: 20040109
  Transmission Date: 20041129
  Serious: Yes (Hospitalization)
  Sender: FDA-Public Use
  Company Number: EWC040137536

PATIENT
  Age: 53 Year
  Sex: Male

DRUGS (6)
  1. GEMCITABINE HYDROCHLORIDE-IV (GEMCITABINE) [Suspect]
     Indication: RENAL CANCER METASTATIC
     Dosage: 1.6 G/L OTHER
     Route: 050
     Dates: start: 20030407, end: 20031002
  2. CAPECITABINE [Concomitant]
  3. EPIRUBICIN [Concomitant]
  4. INTERFERON ALFA [Concomitant]
  5. LEVAMISOLE HYDROCHLORIDE [Concomitant]
  6. DARBEPOETIN ALFA [Concomitant]

REACTIONS (9)
  - DYSPNOEA [None]
  - HAEMOGLOBIN DECREASED [None]
  - HAEMOLYSIS [None]
  - PLATELET COUNT DECREASED [None]
  - RALES [None]
  - RENAL FAILURE [None]
  - RETICULOCYTE COUNT INCREASED [None]
  - WEIGHT INCREASED [None]
  - WHITE BLOOD CELL COUNT DECREASED [None]
